FAERS Safety Report 17195487 (Version 2)
Quarter: 2020Q2

REPORT INFORMATION
  Report Type: Report from Study
  Country: US (occurrence: US)
  Receive Date: 20191224
  Receipt Date: 20200527
  Transmission Date: 20200713
  Serious: Yes (Hospitalization, Other)
  Sender: FDA-Public Use
  Company Number: NVSC2019US078189

PATIENT
  Sex: Female
  Weight: 85.73 kg

DRUGS (8)
  1. LOVALORD [Concomitant]
     Indication: HYPERLIPIDAEMIA
     Dosage: 4 MG, QD
     Route: 065
     Dates: start: 20180701
  2. LOVALORD [Concomitant]
     Dosage: 4 MG, QD
     Route: 065
     Dates: start: 20190101
  3. COSENTYX [Suspect]
     Active Substance: SECUKINUMAB
     Indication: PSORIASIS
     Dosage: 300 MG, QMO
     Route: 065
     Dates: start: 20190716
  4. EFFIENT [Concomitant]
     Active Substance: PRASUGREL HYDROCHLORIDE
     Indication: ANTICOAGULANT THERAPY
     Dosage: 10 MG, QD
     Route: 065
     Dates: start: 20191101
  5. BYSTOLIC [Concomitant]
     Active Substance: NEBIVOLOL HYDROCHLORIDE
     Indication: HYPERTENSION
     Dosage: 5 MG, QD
     Route: 065
     Dates: start: 20191101
  6. ASA [Concomitant]
     Active Substance: ASPIRIN
     Indication: CARDIOVASCULAR EVENT PROPHYLAXIS
     Dosage: 81 MG, QD
     Route: 065
     Dates: start: 20140101
  7. EXFORGE [Concomitant]
     Active Substance: AMLODIPINE BESYLATE\VALSARTAN
     Indication: HYPERTENSION
     Dosage: 160 MG, QD
     Route: 065
     Dates: start: 20191101
  8. ISOSORBIDE. [Concomitant]
     Active Substance: ISOSORBIDE
     Indication: ANGINA PECTORIS
     Dosage: 30 MG, QD
     Route: 065
     Dates: start: 20191101

REACTIONS (4)
  - Cardiac septal hypertrophy [Unknown]
  - Ventricular compliance decreased [Unknown]
  - Ischaemia [Unknown]
  - Aortic valve incompetence [Unknown]
